FAERS Safety Report 19569020 (Version 1)
Quarter: 2021Q3

REPORT INFORMATION
  Report Type: Spontaneous
  Country: DE (occurrence: DE)
  Receive Date: 20210714
  Receipt Date: 20210714
  Transmission Date: 20211014
  Serious: Yes (Hospitalization, Other)
  Sender: FDA-Public Use
  Company Number: DE-BLUEPRINT MEDICINES CORPORATION-SP-DE-2021-001067

PATIENT
  Age: 69 Year
  Sex: Female

DRUGS (2)
  1. AYVAKYT [Suspect]
     Active Substance: AVAPRITINIB
     Indication: GASTROINTESTINAL STROMAL TUMOUR
     Route: 048
  2. PFIZER?BIONTECH COVID?19 VACCINE [Concomitant]
     Active Substance: TOZINAMERAN
     Indication: COVID-19 IMMUNISATION
     Route: 065

REACTIONS (4)
  - Sialoadenitis [Unknown]
  - Swollen tongue [Not Recovered/Not Resolved]
  - Swelling face [Unknown]
  - Salivary hypersecretion [Not Recovered/Not Resolved]
